FAERS Safety Report 20951050 (Version 1)
Quarter: 2022Q2

REPORT INFORMATION
  Report Type: Spontaneous
  Country: US (occurrence: US)
  Receive Date: 20220613
  Receipt Date: 20220613
  Transmission Date: 20220721
  Serious: No
  Sender: FDA-Public Use
  Company Number: US-BRISTOL-MYERS SQUIBB COMPANY-2022-051692

PATIENT
  Age: 66 Year
  Sex: Male

DRUGS (4)
  1. OPDIVO [Suspect]
     Active Substance: NIVOLUMAB
     Indication: Oesophageal carcinoma
     Dosage: DOSE : 6-7 DOSES;     FREQ : EVERY 2 WEEKS
     Route: 042
  2. ELIQUIS [Suspect]
     Active Substance: APIXABAN
     Indication: Thrombosis prophylaxis
     Route: 065
  3. ROSUVASTATIN [Concomitant]
     Active Substance: ROSUVASTATIN
  4. VITAMIN D NOS [Concomitant]
     Active Substance: VITAMIN D NOS
     Dosage: FREQ:TWICE A DAY.

REACTIONS (10)
  - Rash pruritic [Unknown]
  - Rash [Unknown]
  - Fatigue [Unknown]
  - Foot deformity [Unknown]
  - Headache [Unknown]
  - Injection site pain [Unknown]
  - Abnormal faeces [Unknown]
  - Chromaturia [Unknown]
  - Urine odour abnormal [Unknown]
  - Abnormal faeces [Unknown]
